FAERS Safety Report 5168097-1 (Version None)
Quarter: 2006Q4

REPORT INFORMATION
  Report Type: 
  Country: None (occurrence: None)
  Receive Date: 20061208
  Receipt Date: 20061128
  Transmission Date: 20070319
  Serious: Yes (Hospitalization)
  Sender: FDA-Public Use
  Company Number: GBWYE676328NOV06

PATIENT
  Age: 27 Year
  Sex: Female

DRUGS (6)
  1. ENBREL [Suspect]
     Indication: JUVENILE ARTHRITIS
     Route: 058
     Dates: start: 20061006, end: 20061031
  2. ZOPICLONE [Concomitant]
     Indication: INSOMNIA
     Dosage: 7.5MG FREQUENCY UNKNOWN
  3. LANSOPRAZOLE [Concomitant]
     Indication: PROPHYLAXIS
     Dosage: 30MG FREQUENCY UNKNOWN
  4. PREDNISOLONE [Concomitant]
     Indication: ARTHRITIS
  5. DICLOFENAC SODIUM [Concomitant]
     Indication: ARTHRITIS
  6. FERROUS SULFATE TAB [Concomitant]
     Indication: ANAEMIA
     Dosage: 200MG FREQUENCY UNKNOWN

REACTIONS (3)
  - DYSURIA [None]
  - PYREXIA [None]
  - URINARY TRACT INFECTION [None]
